FAERS Safety Report 11829897 (Version 1)
Quarter: 2015Q4

REPORT INFORMATION
  Report Type: Spontaneous
  Country: US (occurrence: US)
  Receive Date: 20151212
  Receipt Date: 20151212
  Transmission Date: 20160305
  Serious: Yes (Hospitalization, Other)
  Sender: FDA-Public Use
  Company Number: US-ASTRAZENECA-2015SF23299

PATIENT
  Sex: Female
  Weight: 72.6 kg

DRUGS (5)
  1. BYDUREON [Suspect]
     Active Substance: EXENATIDE
     Route: 058
  2. PROPANOLOL [Concomitant]
     Active Substance: PROPRANOLOL HYDROCHLORIDE
  3. MIRENA [Concomitant]
     Active Substance: LEVONORGESTREL
     Route: 067
  4. SYNTHROID [Concomitant]
     Active Substance: LEVOTHYROXINE SODIUM
  5. INSULIN [Concomitant]
     Active Substance: INSULIN NOS

REACTIONS (4)
  - Glycosylated haemoglobin increased [Unknown]
  - Seizure [Unknown]
  - Meningitis viral [Unknown]
  - Intentional product misuse [Unknown]
